FAERS Safety Report 17472720 (Version 1)
Quarter: 2020Q1

REPORT INFORMATION
  Report Type: Spontaneous
  Country: US (occurrence: US)
  Receive Date: 20200217
  Receipt Date: 20200217
  Transmission Date: 20200409
  Serious: No
  Sender: FDA-Public Use
  Company Number: None

PATIENT
  Age: 68 Year
  Sex: Female
  Weight: 132.45 kg

DRUGS (1)
  1. BRIMONIDINE/BRINZOLAMIDE (BRIMONIDINE 0.2%/BRINZOLAMIDE 1% SUSP, OPH) [Suspect]
     Active Substance: BRIMONIDINE TARTRATE\BRINZOLAMIDE
     Indication: GLAUCOMA
     Dosage: ?          OTHER DOSE:ONE DROPS;?
     Route: 047
     Dates: start: 20180806, end: 20190607

REACTIONS (1)
  - Conjunctivitis [None]

NARRATIVE: CASE EVENT DATE: 20190607
